FAERS Safety Report 20146196 (Version 3)
Quarter: 2022Q4

REPORT INFORMATION
  Report Type: Report from Study
  Country: US (occurrence: US)
  Receive Date: 20211203
  Receipt Date: 20221201
  Transmission Date: 20230112
  Serious: Yes (Other)
  Sender: FDA-Public Use
  Company Number: US-TAKEDA-US201912416

PATIENT
  Sex: Female
  Weight: 64 kg

DRUGS (12)
  1. HUMAN IMMUNOGLOBULIN G\HYALURONIDASE RECOMBINANT HUMAN [Suspect]
     Active Substance: HUMAN IMMUNOGLOBULIN G\HYALURONIDASE RECOMBINANT HUMAN
     Indication: Immunodeficiency common variable
     Dosage: 30 GRAM, Q4WEEKS
     Route: 058
     Dates: start: 20180207
  2. HUMAN IMMUNOGLOBULIN G\HYALURONIDASE RECOMBINANT HUMAN [Suspect]
     Active Substance: HUMAN IMMUNOGLOBULIN G\HYALURONIDASE RECOMBINANT HUMAN
     Indication: Primary immunodeficiency syndrome
     Dosage: 30 GRAM, Q4WEEKS
     Route: 058
     Dates: start: 20180226
  3. PRAMIPEXOLE DIHYDROCHLORIDE [Concomitant]
     Active Substance: PRAMIPEXOLE DIHYDROCHLORIDE
  4. VYVANSE [Concomitant]
     Active Substance: LISDEXAMFETAMINE DIMESYLATE
  5. IBUPROFEN [Concomitant]
     Active Substance: IBUPROFEN
  6. ARMOUR THYROID [Concomitant]
     Active Substance: THYROID, PORCINE
  7. GABAPENTIN [Concomitant]
     Active Substance: GABAPENTIN
  8. FLUCONAZOLE [Concomitant]
     Active Substance: FLUCONAZOLE
  9. ADDERALL [Concomitant]
     Active Substance: AMPHETAMINE ASPARTATE\AMPHETAMINE SULFATE\DEXTROAMPHETAMINE SACCHARATE\DEXTROAMPHETAMINE SULFATE
  10. ALEVE [Concomitant]
     Active Substance: NAPROXEN SODIUM
  11. ROZEREM [Concomitant]
     Active Substance: RAMELTEON
  12. CLONAZEPAM [Concomitant]
     Active Substance: CLONAZEPAM

REACTIONS (7)
  - Knee arthroplasty [Unknown]
  - Pain [Recovered/Resolved]
  - Blood pressure increased [Recovered/Resolved]
  - Malaise [Unknown]
  - Inability to afford medication [Unknown]
  - Product storage error [Recovered/Resolved]
  - Product dose omission issue [Unknown]

NARRATIVE: CASE EVENT DATE: 20180101
